FAERS Safety Report 24786985 (Version 1)
Quarter: 2024Q4

REPORT INFORMATION
  Report Type: Spontaneous
  Country: US (occurrence: US)
  Receive Date: 20241230
  Receipt Date: 20241230
  Transmission Date: 20250115
  Serious: Yes (Hospitalization, Other)
  Sender: ZYDUS PHARM
  Company Number: US-CADILA HEALTHCARE LIMITED-US-ZYDUS-116806

PATIENT

DRUGS (3)
  1. IBRUTINIB [Suspect]
     Active Substance: IBRUTINIB
     Indication: Chronic lymphocytic leukaemia
     Dosage: 280 MILLIGRAM, QD
     Route: 065
  2. IBRUTINIB [Suspect]
     Active Substance: IBRUTINIB
     Dosage: 140 MILLIGRAM
     Route: 065
  3. CISPLATIN [Concomitant]
     Active Substance: CISPLATIN
     Indication: Chronic lymphocytic leukaemia
     Dosage: UNK, WEEKLY
     Route: 065

REACTIONS (6)
  - Febrile neutropenia [Unknown]
  - Neutropenia [Unknown]
  - Stomatitis [Unknown]
  - Thrombocytopenia [Unknown]
  - Acute kidney injury [Unknown]
  - Pneumonia [Unknown]
